FAERS Safety Report 4614637-8 (Version None)
Quarter: 2005Q2

REPORT INFORMATION
  Report Type: 
  Country: None (occurrence: None)
  Receive Date: 20050311
  Receipt Date: 20041230
  Transmission Date: 20051028
  Serious: No
  Sender: FDA-Public Use
  Company Number: 2005-BP-00068BP

PATIENT
  Sex: Female

DRUGS (1)
  1. SPIRIVA [Suspect]

REACTIONS (2)
  - DRY MOUTH [None]
  - DYSPHONIA [None]
